FAERS Safety Report 8788955 (Version 1)
Quarter: 2012Q4

REPORT INFORMATION
  Report Type: 
  Country: US (occurrence: US)
  Receive Date: 20120917
  Receipt Date: 20120917
  Transmission Date: 20130627
  Serious: No
  Sender: FDA-Public Use
  Company Number: US-PFIZER INC-2012224534

PATIENT
  Age: 25 Year
  Sex: Female
  Weight: 47.17 kg

DRUGS (3)
  1. PRISTIQ [Suspect]
     Indication: HYPOAESTHESIA
     Dosage: splitting the 100 mg tablet into half, daily
     Route: 048
     Dates: start: 20120817
  2. PRISTIQ [Suspect]
     Indication: PARAESTHESIA
  3. PRISTIQ [Suspect]
     Indication: ANXIETY

REACTIONS (4)
  - Fatigue [Not Recovered/Not Resolved]
  - Somnolence [Not Recovered/Not Resolved]
  - Off label use [Unknown]
  - Drug ineffective for unapproved indication [Unknown]
